FAERS Safety Report 14178221 (Version 1)
Quarter: 2017Q4

REPORT INFORMATION
  Report Type: Spontaneous
  Country: CN (occurrence: CN)
  Receive Date: 20171110
  Receipt Date: 20171110
  Transmission Date: 20180321
  Serious: Yes (Other)
  Sender: FDA-Public Use
  Company Number: CN-ELI_LILLY_AND_COMPANY-CN201711000396

PATIENT
  Sex: Male

DRUGS (4)
  1. HUMULIN R [Suspect]
     Active Substance: INSULIN HUMAN
     Indication: DIABETES MELLITUS
     Dosage: 14 U, DAILY (AT NIGHT)
     Route: 058
     Dates: start: 20171025
  2. HUMULIN R [Suspect]
     Active Substance: INSULIN HUMAN
     Dosage: 10 U, DAILY (AT NIGHT)
     Route: 058
     Dates: start: 20171025
  3. HUMULIN R [Suspect]
     Active Substance: INSULIN HUMAN
     Indication: DIABETES MELLITUS
     Dosage: 14 U, EACH MORNING
     Route: 058
     Dates: start: 20171025
  4. HUMULIN R [Suspect]
     Active Substance: INSULIN HUMAN
     Dosage: 6 U, DAILY (AT NOON)
     Route: 058
     Dates: start: 20171025

REACTIONS (3)
  - Ocular icterus [Not Recovered/Not Resolved]
  - Yellow skin [Not Recovered/Not Resolved]
  - Chromaturia [Not Recovered/Not Resolved]

NARRATIVE: CASE EVENT DATE: 20171025
